FAERS Safety Report 23214422 (Version 1)
Quarter: 2023Q4

REPORT INFORMATION
  Report Type: Spontaneous
  Country: CA (occurrence: CA)
  Receive Date: 20231121
  Receipt Date: 20231121
  Transmission Date: 20240110
  Serious: Yes (Other)
  Sender: FDA-Public Use
  Company Number: CA-INCYTE CORPORATION-2023IN011357

PATIENT

DRUGS (3)
  1. PEMAZYRE [Suspect]
     Active Substance: PEMIGATINIB
     Indication: Adenocarcinoma pancreas
     Dosage: 9 MILLIGRAM (14 DAYS ON AND 7 DAYS OFF) AS PER PRN
     Route: 048
     Dates: start: 20231030
  2. PEMAZYRE [Suspect]
     Active Substance: PEMIGATINIB
     Dosage: 9 MILLIGRAM AS PER PM
     Route: 048
     Dates: start: 20231030
  3. PEMAZYRE [Suspect]
     Active Substance: PEMIGATINIB
     Dosage: 9 MILLIGRAM X 14 DAYS THEN 7 DAYS OFF
     Route: 048
     Dates: start: 20231030, end: 20231112

REACTIONS (6)
  - Ascites [Not Recovered/Not Resolved]
  - Terminal state [Not Recovered/Not Resolved]
  - Cognitive disorder [Not Recovered/Not Resolved]
  - Decreased activity [Not Recovered/Not Resolved]
  - Product dose omission issue [Unknown]
  - Off label use [Unknown]

NARRATIVE: CASE EVENT DATE: 20231030
